FAERS Safety Report 9326203 (Version 1)
Quarter: 2013Q2

REPORT INFORMATION
  Report Type: Spontaneous
  Country: US (occurrence: None)
  Receive Date: 20130603
  Receipt Date: 20130603
  Transmission Date: 20140414
  Serious: Yes (Other)
  Sender: FDA-Public Use
  Company Number: None

PATIENT
  Age: 44 Year
  Sex: Male
  Weight: 68.04 kg

DRUGS (2)
  1. CYMBALTA [Suspect]
     Indication: MULTIPLE SCLEROSIS
     Route: 048
     Dates: start: 20130501, end: 20130524
  2. CYMBALTA [Suspect]
     Indication: PAIN MANAGEMENT
     Route: 048
     Dates: start: 20130501, end: 20130524

REACTIONS (1)
  - Semen analysis abnormal [None]
